FAERS Safety Report 7419450-4 (Version None)
Quarter: 2011Q2

REPORT INFORMATION
  Report Type: 
  Country: None (occurrence: None)
  Receive Date: 20110413
  Receipt Date: 20110413
  Transmission Date: 20111010
  Serious: Yes (Death, Hospitalization)
  Sender: FDA-Public Use
  Company Number: None

PATIENT
  Age: 69 Year
  Sex: Male
  Weight: 103.2 kg

DRUGS (11)
  1. COUMADIN [Concomitant]
  2. DIGOXIN [Concomitant]
  3. CELLCEPT [Concomitant]
  4. DRONADERONE 400 MG [Suspect]
     Indication: ATRIAL FIBRILLATION
     Dosage: 400 MG BID PO
     Route: 048
     Dates: start: 20100801, end: 20100901
  5. FLOVENT [Concomitant]
  6. HYDROXYZINE [Concomitant]
  7. PRILOSEC [Concomitant]
  8. PREDNISONE [Concomitant]
  9. DIOVAN [Concomitant]
  10. DILTIAZEM [Concomitant]
  11. FLONASE [Concomitant]

REACTIONS (4)
  - ATRIAL FIBRILLATION [None]
  - DIFFUSE ALVEOLAR DAMAGE [None]
  - ORGANISING PNEUMONIA [None]
  - RESPIRATORY FAILURE [None]
